FAERS Safety Report 25430746 (Version 1)
Quarter: 2025Q2

REPORT INFORMATION
  Report Type: Spontaneous
  Country: CN (occurrence: CN)
  Receive Date: 20250612
  Receipt Date: 20250612
  Transmission Date: 20250717
  Serious: Yes (Other)
  Sender: CALLIDITAS THERAPEUTICS AB
  Company Number: CN-EVEREST-20250500216

PATIENT
  Sex: Male

DRUGS (1)
  1. BUDESONIDE [Suspect]
     Active Substance: BUDESONIDE
     Indication: IgA nephropathy
     Dosage: 16 MILLIGRAM, QD
     Route: 048
     Dates: start: 20250510

REACTIONS (2)
  - Gastroduodenal ulcer [Unknown]
  - Back pain [Unknown]

NARRATIVE: CASE EVENT DATE: 20250524
